FAERS Safety Report 14137482 (Version 5)
Quarter: 2018Q1

REPORT INFORMATION
  Report Type: Spontaneous
  Country: TR (occurrence: TR)
  Receive Date: 20171027
  Receipt Date: 20180108
  Transmission Date: 20180508
  Serious: Yes (Other)
  Sender: FDA-Public Use
  Company Number: TR-PFIZER INC-2017461878

PATIENT
  Age: 64 Year
  Sex: Male
  Weight: 55 kg

DRUGS (3)
  1. CYMBALTA [Concomitant]
     Active Substance: DULOXETINE HYDROCHLORIDE
     Indication: NEURALGIA
     Dosage: 60 MG, 1X/DAY
     Dates: start: 201708
  2. NEURONTIN [Suspect]
     Active Substance: GABAPENTIN
     Indication: NEURALGIA
     Dosage: 800 MG, 3X/DAY
     Dates: start: 201708
  3. NEURONTIN [Suspect]
     Active Substance: GABAPENTIN
     Dosage: 60 MG, UNK

REACTIONS (7)
  - Blood creatine increased [Not Recovered/Not Resolved]
  - Gait inability [Recovered/Resolved]
  - Increased appetite [Not Recovered/Not Resolved]
  - Sciatica [Recovered/Resolved]
  - Musculoskeletal pain [Recovered/Resolved]
  - Somnolence [Not Recovered/Not Resolved]
  - Pain in extremity [Recovered/Resolved]

NARRATIVE: CASE EVENT DATE: 201709
